FAERS Safety Report 6015058-6 (Version None)
Quarter: 2008Q4

REPORT INFORMATION
  Report Type: 
  Country: None (occurrence: None)
  Receive Date: 20081222
  Receipt Date: 20081215
  Transmission Date: 20090506
  Serious: Yes (Other)
  Sender: FDA-Public Use
  Company Number: FR-JNJFOC-20081203736

PATIENT
  Age: 58 Year
  Sex: Male

DRUGS (1)
  1. OFLOXACIN [Suspect]
     Indication: PROSTATITIS
     Route: 048

REACTIONS (5)
  - BACK PAIN [None]
  - HYPERAESTHESIA [None]
  - NAUSEA [None]
  - SCIATICA [None]
  - VERTIGO [None]
